FAERS Safety Report 8287725-5 (Version None)
Quarter: 2012Q2

REPORT INFORMATION
  Report Type: 
  Country: None (occurrence: None)
  Receive Date: 20120416
  Receipt Date: 20120412
  Transmission Date: 20120825
  Serious: No
  Sender: FDA-Public Use
  Company Number: US-TEVA-333078USA

PATIENT
  Sex: Female
  Weight: 63.56 kg

DRUGS (1)
  1. PROAIR HFA [Suspect]
     Indication: ASTHMA
     Dosage: 360 MICROGRAM; TWP PUFFS
     Route: 055

REACTIONS (1)
  - DRY MOUTH [None]
